FAERS Safety Report 18756811 (Version 1)
Quarter: 2021Q1

REPORT INFORMATION
  Report Type: Spontaneous
  Country: US (occurrence: US)
  Receive Date: 20210118
  Receipt Date: 20210118
  Transmission Date: 20210419
  Serious: Yes (Death)
  Sender: FDA-Public Use
  Company Number: None

PATIENT
  Age: 12 Year
  Sex: Female

DRUGS (5)
  1. ZOFRAN ODT 8MG [Concomitant]
     Dates: start: 20200914, end: 20210117
  2. IMATINIB MESYLATE. [Suspect]
     Active Substance: IMATINIB MESYLATE
     Indication: LEUKAEMIA
     Route: 048
     Dates: start: 20200916, end: 20210117
  3. BACTRIM 400?80MG [Concomitant]
     Dates: start: 20200921, end: 20210117
  4. LANSOPRAZOLE ODT 15MG [Concomitant]
     Dates: start: 20200914, end: 20210117
  5. NORETHINDRONE 5 MG [Concomitant]
     Dates: start: 20200914, end: 20210117

REACTIONS (1)
  - Death [None]

NARRATIVE: CASE EVENT DATE: 20210117
